FAERS Safety Report 9772625 (Version 3)
Quarter: 2014Q2

REPORT INFORMATION
  Report Type: Report from Study
  Country: JP (occurrence: JP)
  Receive Date: 20131219
  Receipt Date: 20140612
  Transmission Date: 20141212
  Serious: Yes (Other)
  Sender: FDA-Public Use
  Company Number: JP-B.I. PHARMACEUTICALS,INC./RIDGEFIELD-2013-BI-42105NB

PATIENT
  Age: 81 Year
  Sex: Male
  Weight: 58.4 kg

DRUGS (7)
  1. PRAZAXA [Suspect]
     Indication: CEREBROVASCULAR ACCIDENT PROPHYLAXIS
     Dosage: 220 MG
     Route: 048
     Dates: start: 20120406, end: 20130801
  2. LASIX [Concomitant]
     Dosage: 40 MG
     Route: 048
  3. FEBURIC [Concomitant]
     Dosage: 20 MG
     Route: 048
  4. AVAPRO [Concomitant]
     Dosage: 100 MG
     Route: 048
  5. HARNAL [Concomitant]
     Dosage: 0.1 MG
     Route: 048
  6. ARTIST [Concomitant]
     Indication: ATRIAL FIBRILLATION
     Dosage: 0.5 MG
     Route: 048
  7. LIVALO [Concomitant]
     Dosage: 1 MG
     Route: 048

REACTIONS (1)
  - Pituitary haemorrhage [Recovered/Resolved]
